FAERS Safety Report 8118296-1 (Version None)
Quarter: 2012Q1

REPORT INFORMATION
  Report Type: 
  Country: None (occurrence: None)
  Receive Date: 20120207
  Receipt Date: 20120130
  Transmission Date: 20120608
  Serious: Yes (Hospitalization)
  Sender: FDA-Public Use
  Company Number: FR-SANOFI-AVENTIS-2012SA006087

PATIENT
  Age: 31 Year
  Sex: Female

DRUGS (9)
  1. LASIX [Suspect]
     Route: 048
     Dates: start: 20111214, end: 20111215
  2. LERCANIDIPINE [Suspect]
     Route: 048
     Dates: start: 20111214, end: 20111214
  3. CALCIDIA [Concomitant]
  4. RENAGEL [Concomitant]
  5. PREDNISONE TAB [Concomitant]
  6. OMEPRAZOLE [Concomitant]
  7. SODIUM BICARBONATE [Concomitant]
  8. TENORMIN [Concomitant]
  9. MYCOPHENOLATE MOFETIL (CELLCEPT) [Concomitant]

REACTIONS (5)
  - DEHYDRATION [None]
  - ABDOMINAL PAIN UPPER [None]
  - VOMITING [None]
  - DIARRHOEA [None]
  - ANGIOEDEMA [None]
